FAERS Safety Report 20489111 (Version 1)
Quarter: 2022Q1

REPORT INFORMATION
  Report Type: Spontaneous
  Country: US (occurrence: None)
  Receive Date: 20220217
  Receipt Date: 20220217
  Transmission Date: 20220423
  Serious: Yes (Other)
  Sender: FDA-Public Use
  Company Number: None

PATIENT
  Age: 67 Year
  Sex: Female

DRUGS (1)
  1. BUPRENORPHINE [Suspect]
     Active Substance: BUPRENORPHINE
     Indication: Pain
     Dates: start: 20220128

REACTIONS (5)
  - Nausea [None]
  - Dizziness [None]
  - Drug ineffective [None]
  - Suspected product quality issue [None]
  - Pain [None]

NARRATIVE: CASE EVENT DATE: 20220209
